FAERS Safety Report 25048799 (Version 1)
Quarter: 2025Q1

REPORT INFORMATION
  Report Type: Spontaneous
  Country: CN (occurrence: CN)
  Receive Date: 20250307
  Receipt Date: 20250307
  Transmission Date: 20250408
  Serious: Yes (Other)
  Sender: TERSERA THERAPEUTICS
  Company Number: CN-ASTRAZENECA-202502CHN020620CN

PATIENT

DRUGS (10)
  1. GOSERELIN [Suspect]
     Active Substance: GOSERELIN
     Indication: Breast cancer female
     Route: 058
     Dates: start: 20250116, end: 20250123
  2. GOSERELIN [Suspect]
     Active Substance: GOSERELIN
     Indication: Benign bone neoplasm
     Route: 058
  3. GOSERELIN [Suspect]
     Active Substance: GOSERELIN
     Indication: Pain
     Route: 058
  4. GOSERELIN [Suspect]
     Active Substance: GOSERELIN
     Route: 058
  5. ZOLADEX [Suspect]
     Active Substance: GOSERELIN ACETATE
     Indication: Breast cancer female
     Route: 065
  6. ZOLADEX [Suspect]
     Active Substance: GOSERELIN ACETATE
     Indication: Benign bone neoplasm
  7. ZOLADEX [Suspect]
     Active Substance: GOSERELIN ACETATE
     Indication: Pain
  8. ZOLADEX [Suspect]
     Active Substance: GOSERELIN ACETATE
     Indication: Neuralgia
  9. XGEVA [Suspect]
     Active Substance: DENOSUMAB
     Indication: Product used for unknown indication
     Route: 059
  10. HERCEPTIN [Suspect]
     Active Substance: TRASTUZUMAB
     Indication: Product used for unknown indication
     Route: 065
     Dates: start: 20250116, end: 20250123

REACTIONS (1)
  - Myelosuppression [Unknown]

NARRATIVE: CASE EVENT DATE: 20250126
